FAERS Safety Report 18406178 (Version 2)
Quarter: 2020Q4

REPORT INFORMATION
  Report Type: Spontaneous
  Country: US (occurrence: US)
  Receive Date: 20201020
  Receipt Date: 20201109
  Transmission Date: 20210114
  Serious: Yes (Other)
  Sender: FDA-Public Use
  Company Number: US-LUPIN PHARMACEUTICALS INC.-2020-06979

PATIENT
  Age: 80 Year
  Sex: Female
  Weight: 43.81 kg

DRUGS (2)
  1. VANCOMYCIN HYDROCHLORIDE CAPSULES USP 125 MG [Suspect]
     Active Substance: VANCOMYCIN HYDROCHLORIDE
     Indication: CLOSTRIDIUM DIFFICILE COLITIS
     Dosage: 125 MILLIGRAM, QID
     Route: 048
     Dates: start: 20200823, end: 20200905
  2. VANCOMYCIN HYDROCHLORIDE CAPSULES USP 125 MG [Suspect]
     Active Substance: VANCOMYCIN HYDROCHLORIDE
     Dosage: 125 MILLIGRAM, QID
     Route: 048
     Dates: start: 20200906, end: 20200915

REACTIONS (5)
  - Tinnitus [Not Recovered/Not Resolved]
  - Drug ineffective [Unknown]
  - Hypoacusis [Not Recovered/Not Resolved]
  - Weight decreased [Not Recovered/Not Resolved]
  - Otitis externa [Not Recovered/Not Resolved]

NARRATIVE: CASE EVENT DATE: 2020
